FAERS Safety Report 4708773-5 (Version None)
Quarter: 2005Q3

REPORT INFORMATION
  Report Type: 
  Country: None (occurrence: None)
  Receive Date: 20050707
  Receipt Date: 20050621
  Transmission Date: 20060218
  Serious: Yes (Other)
  Sender: FDA-Public Use
  Company Number: HQWYE619322JUN05

PATIENT
  Sex: Female

DRUGS (6)
  1. ENBREL [Suspect]
     Indication: RHEUMATOID ARTHRITIS
     Route: 058
     Dates: start: 20040415
  2. ENBREL [Suspect]
     Route: 058
  3. ALENDRONATE SODIUM [Concomitant]
  4. PREDNISONE TAB [Concomitant]
  5. RANITIDINE [Concomitant]
  6. UNSPECIFIED MEDICATION [Concomitant]

REACTIONS (2)
  - IMMUNE SYSTEM DISORDER [None]
  - PULMONARY FIBROSIS [None]
